FAERS Safety Report 10358060 (Version 2)
Quarter: 2014Q3

REPORT INFORMATION
  Report Type: Spontaneous
  Country: US (occurrence: US)
  Receive Date: 20140801
  Receipt Date: 20140801
  Transmission Date: 20150326
  Serious: Yes (Hospitalization, Other)
  Sender: FDA-Public Use
  Company Number: US-009507513-2009-200082-NL

PATIENT
  Sex: Female
  Weight: 71.67 kg

DRUGS (9)
  1. FLEXERIL [Concomitant]
     Active Substance: CYCLOBENZAPRINE HYDROCHLORIDE
     Indication: PRODUCT USED FOR UNKNOWN INDICATION
     Dates: start: 20060525
  2. NUVARING [Suspect]
     Active Substance: ETHINYL ESTRADIOL\ETONOGESTREL
     Indication: PRODUCT USED FOR UNKNOWN INDICATION
     Dosage: 1 DF, UNK
     Dates: start: 2002, end: 2006
  3. LOTRIMIN (CLOTRIMAZOLE) [Concomitant]
     Indication: RASH
     Dates: start: 20060412
  4. NUVARING [Suspect]
     Active Substance: ETHINYL ESTRADIOL\ETONOGESTREL
     Dates: start: 2006
  5. ZOLOFT [Concomitant]
     Active Substance: SERTRALINE HYDROCHLORIDE
     Indication: DEPRESSION
     Dates: end: 2004
  6. BENADRYL [Concomitant]
     Active Substance: DIPHENHYDRAMINE HYDROCHLORIDE
     Indication: RASH
     Dates: start: 20060412
  7. MINERALS (UNSPECIFIED) (+) VITAMINS (UNSPECIFIED) [Concomitant]
     Indication: PRODUCT USED FOR UNKNOWN INDICATION
     Dates: start: 20060315
  8. PROVENTIL [Concomitant]
     Active Substance: ALBUTEROL
     Indication: ASTHMA
     Dates: start: 2003
  9. FLAGYL [Concomitant]
     Active Substance: METRONIDAZOLE\METRONIDAZOLE HYDROCHLORIDE
     Indication: VAGINAL DISCHARGE
     Dates: start: 20060503

REACTIONS (12)
  - Migraine [Unknown]
  - Staphylococcal infection [Unknown]
  - Joint swelling [Unknown]
  - Periorbital cellulitis [Unknown]
  - Deep vein thrombosis [Unknown]
  - Unintended pregnancy [Recovered/Resolved]
  - Hypertension [Unknown]
  - Pre-eclampsia [Unknown]
  - Pulmonary embolism [Recovered/Resolved]
  - Deep vein thrombosis [Unknown]
  - Menorrhagia [Unknown]
  - Ovarian cyst [Unknown]

NARRATIVE: CASE EVENT DATE: 2005
